FAERS Safety Report 9842694 (Version 2)
Quarter: 2014Q1

REPORT INFORMATION
  Report Type: Spontaneous
  Country: FR (occurrence: FR)
  Receive Date: 20140124
  Receipt Date: 20140130
  Transmission Date: 20141002
  Serious: Yes (Hospitalization)
  Sender: FDA-Public Use
  Company Number: FR-PFIZER INC-2014021787

PATIENT
  Age: 92 Year
  Sex: Male

DRUGS (5)
  1. TRIATEC [Suspect]
     Indication: CARDIAC FAILURE
     Dosage: 2.5 MG, DAILY
     Route: 048
     Dates: end: 20130930
  2. BISOCE [Suspect]
     Indication: HYPERTENSION
     Dosage: 1.25 MG, 2X/DAY
     Route: 048
     Dates: end: 20131023
  3. LERCANIDIPINE HYDROCHLORIDE [Suspect]
     Indication: HYPERTENSION
     Dosage: 10 MG, DAILY
     Route: 048
     Dates: end: 20130930
  4. LASILIX [Suspect]
     Indication: HYPERTENSION
     Dosage: 40 MG, DAILY
     Route: 048
     Dates: end: 20131023
  5. EXELON [Concomitant]
     Dosage: UNK

REACTIONS (4)
  - Fall [Recovered/Resolved]
  - Hypotension [Recovered/Resolved]
  - Asthenia [Recovered/Resolved]
  - Dizziness [Recovered/Resolved]
